FAERS Safety Report 23371908 (Version 1)
Quarter: 2024Q1

REPORT INFORMATION
  Report Type: Spontaneous
  Country: CN (occurrence: CN)
  Receive Date: 20240105
  Receipt Date: 20240105
  Transmission Date: 20240409
  Serious: Yes (Other)
  Sender: FDA-Public Use
  Company Number: CN-PFIZER INC-PV202300210352

PATIENT
  Age: 8 Year
  Sex: Female
  Weight: 26.5 kg

DRUGS (2)
  1. CYTARABINE [Suspect]
     Active Substance: CYTARABINE
     Indication: Acute myeloid leukaemia
     Dosage: 3 G, 1X/DAY
     Route: 041
     Dates: start: 20231212, end: 20231216
  2. CYTARABINE [Suspect]
     Active Substance: CYTARABINE
     Indication: Neoplasm malignant

REACTIONS (3)
  - Conjunctivitis [Recovered/Resolved]
  - Photophobia [Unknown]
  - Lacrimation increased [Unknown]

NARRATIVE: CASE EVENT DATE: 20231220
